FAERS Safety Report 4374071-5 (Version None)
Quarter: 2004Q2

REPORT INFORMATION
  Report Type: 
  Country: None (occurrence: None)
  Receive Date: 20040604
  Receipt Date: 20040528
  Transmission Date: 20050107
  Serious: Yes (Hospitalization)
  Sender: FDA-Public Use
  Company Number: HQWYE135428MAY04

PATIENT
  Age: 71 Year
  Sex: Female

DRUGS (4)
  1. METHOTREXATE [Suspect]
     Indication: RHEUMATOID ARTHRITIS
     Dosage: 15 MG 1X PER 1 WK, ORAL
     Route: 048
     Dates: start: 20000801, end: 20040511
  2. ADVIL [Suspect]
     Dosage: 1 TABLET AS NEEDED, ORAL
     Route: 048
     Dates: start: 19910101, end: 20040511
  3. PREDNISONE TAB [Suspect]
     Dosage: 5 MG 1X PER 1 DAY, ORAL
     Route: 048
     Dates: start: 19900101, end: 20040511
  4. VICODIN [Suspect]
     Dosage: 1 TABLET AS NEEDED, ORAL
     Route: 048

REACTIONS (5)
  - DECREASED APPETITE [None]
  - DIARRHOEA [None]
  - MENTAL STATUS CHANGES [None]
  - NAUSEA [None]
  - PNEUMONITIS [None]
